FAERS Safety Report 9156698 (Version 1)
Quarter: 2013Q1

REPORT INFORMATION
  Report Type: Spontaneous
  Country: US (occurrence: None)
  Receive Date: 20130308
  Receipt Date: 20130308
  Transmission Date: 20140127
  Serious: Yes (Hospitalization)
  Sender: FDA-Public Use
  Company Number: None

PATIENT
  Sex: Male
  Weight: 60 kg

DRUGS (1)
  1. CETUXIMAB (ERBITUX) (714692) [Suspect]
     Dosage: COMPLETED 8 DOSES

REACTIONS (5)
  - Urinary tract infection [None]
  - Metabolic encephalopathy [None]
  - Lobar pneumonia [None]
  - Hyponatraemia [None]
  - Dehydration [None]
